FAERS Safety Report 5370634-9 (Version None)
Quarter: 2007Q2

REPORT INFORMATION
  Report Type: 
  Country: None (occurrence: None)
  Receive Date: 20070626
  Receipt Date: 20070523
  Transmission Date: 20071010
  Serious: Yes (Hospitalization)
  Sender: FDA-Public Use
  Company Number: JP-PURDUE-MAG_2007_0000552

PATIENT
  Age: 34 Year
  Sex: Female

DRUGS (9)
  1. THEOPHYLLINE [Suspect]
     Indication: ASTHMA
     Dosage: 400 MG, DAILY
     Route: 048
     Dates: start: 20070513, end: 20070520
  2. MONTELUKAST SODIUM [Concomitant]
     Indication: ASTHMA
     Dosage: 10 MG, DAILY
     Route: 048
     Dates: start: 20070511, end: 20070520
  3. TULOBUTEROL [Concomitant]
     Indication: ASTHMA
     Dosage: 1 MG, DAILY
     Route: 062
     Dates: start: 20070511, end: 20070520
  4. PROCATEROL HCL [Concomitant]
     Indication: ASTHMA
     Dosage: 120 MCG, DAILY
     Route: 055
     Dates: start: 20070511, end: 20070526
  5. CROMOGLICIN-RATIOPHARM [Concomitant]
     Indication: ASTHMA
     Dosage: 4 AMPULE, DAILY
     Route: 055
     Dates: start: 20070511, end: 20070526
  6. ISOTONIC SOLUTIONS [Concomitant]
     Indication: ASTHMA
     Dosage: 4 ML, DAILY
     Route: 055
     Dates: start: 20070511, end: 20070526
  7. BUDESONIDE [Concomitant]
     Indication: ASTHMA
     Dosage: 800 MCG, DAILY
     Route: 055
     Dates: start: 20070514, end: 20070526
  8. METHYLPREDNISOLONE [Concomitant]
     Indication: ASTHMA
     Route: 042
     Dates: start: 20070511, end: 20070516
  9. AMPICILLIN SODIUM/SULBACTAM SODIUM [Concomitant]
     Indication: ASTHMA
     Route: 042
     Dates: start: 20070511

REACTIONS (1)
  - ERYTHEMA MULTIFORME [None]
